FAERS Safety Report 7437468-2 (Version None)
Quarter: 2011Q2

REPORT INFORMATION
  Report Type: 
  Country: None (occurrence: None)
  Receive Date: 20110426
  Receipt Date: 20110422
  Transmission Date: 20111010
  Serious: Yes (Hospitalization, Other)
  Sender: FDA-Public Use
  Company Number: JP-ABBOTT-11P-087-0707119-00

PATIENT
  Sex: Male

DRUGS (6)
  1. LEFLUNOMIDE [Concomitant]
     Indication: RHEUMATOID ARTHRITIS
     Dosage: 20 MG DAILY
     Route: 048
  2. FERROUS CITRATE [Concomitant]
     Indication: ANAEMIA
     Dosage: 50 MG DAILY
  3. FOLIC ACID [Concomitant]
     Indication: ANAEMIA
     Dosage: 5 MG DAILY
  4. TERIPARATIDE [Concomitant]
     Indication: OSTEOPOROSIS
     Dosage: 20 MCG DAILY
     Route: 058
     Dates: start: 20101224, end: 20110215
  5. HUMIRA [Suspect]
     Indication: RHEUMATOID ARTHRITIS
     Route: 058
     Dates: start: 20101210, end: 20110204
  6. MECOBALAMIN [Concomitant]
     Indication: NEUROSIS
     Dosage: 500 MCG DAILY

REACTIONS (3)
  - AORTIC VALVE INCOMPETENCE [None]
  - CARDIAC FAILURE [None]
  - ACUTE MYOCARDIAL INFARCTION [None]
